FAERS Safety Report 9298373 (Version 2)
Quarter: 2014Q1

REPORT INFORMATION
  Report Type: Spontaneous
  Country: CA (occurrence: CA)
  Receive Date: 20130520
  Receipt Date: 20140120
  Transmission Date: 20141002
  Serious: Yes (Death, Hospitalization)
  Sender: FDA-Public Use
  Company Number: CA-AMGEN-CANSP2013034289

PATIENT
  Age: 88 Year
  Sex: Female

DRUGS (10)
  1. ARANESP [Suspect]
     Indication: RENAL FAILURE CHRONIC
     Dosage: 20 MUG, UNK
     Route: 065
     Dates: start: 20121113
  2. ATORVASTATIN [Concomitant]
  3. CALCIUM [Concomitant]
  4. IRON [Concomitant]
  5. FERROUS                            /00023501/ [Concomitant]
  6. FUROSEMIDE [Concomitant]
  7. LANSOPRAZOLE [Concomitant]
  8. ALLOPURINOL [Concomitant]
  9. ADVAIR [Concomitant]
  10. ATROVENT [Concomitant]

REACTIONS (2)
  - Chronic obstructive pulmonary disease [Fatal]
  - Pneumonia [Recovering/Resolving]
